APPROVED DRUG PRODUCT: CYANOKIT
Active Ingredient: HYDROXOCOBALAMIN
Strength: 5GM/VIAL (5GM/KIT)
Dosage Form/Route: INJECTABLE;INJECTION
Application: N022041 | Product #001
Applicant: BTG INTERNATIONAL INC
Approved: Apr 8, 2011 | RLD: Yes | RS: Yes | Type: RX